FAERS Safety Report 5503459-1 (Version None)
Quarter: 2007Q4

REPORT INFORMATION
  Report Type: 
  Country: None (occurrence: None)
  Receive Date: 20071029
  Receipt Date: 20071012
  Transmission Date: 20080405
  Serious: Yes (Hospitalization)
  Sender: FDA-Public Use
  Company Number: 2007S1010440

PATIENT
  Age: 81 Year
  Sex: Female

DRUGS (7)
  1. CO-AMILOFRUSE (FRUMIL) [Suspect]
     Indication: CARDIAC FAILURE CONGESTIVE
     Dosage: 1 DF; DAILY; ORAL
     Route: 048
     Dates: start: 20050101, end: 20051221
  2. FUROSEMIDE [Suspect]
     Indication: CARDIAC FAILURE CONGESTIVE
     Dosage: 20 MG; DAILY; ORAL
     Route: 048
     Dates: start: 20050101, end: 20051221
  3. DURAGESIC-100 [Suspect]
     Indication: BACK PAIN
     Dosage: ; TWICE A WEEK; TRANSDERMAL
     Route: 062
     Dates: start: 20051216, end: 20051221
  4. SPIRONOLACTONE [Suspect]
     Indication: CARDIAC FAILURE CONGESTIVE
     Dosage: 100 MG; DAILY; ORAL
     Route: 048
     Dates: start: 20051125, end: 20051221
  5. CO-CODAMOL [Concomitant]
  6. LACTULOSE [Concomitant]
  7. SENNA [Concomitant]

REACTIONS (3)
  - DEHYDRATION [None]
  - NAUSEA [None]
  - VOMITING [None]
